FAERS Safety Report 6049341-5 (Version None)
Quarter: 2009Q1

REPORT INFORMATION
  Report Type: 
  Country: None (occurrence: None)
  Receive Date: 20090123
  Receipt Date: 20090121
  Transmission Date: 20090719
  Serious: No
  Sender: FDA-Public Use
  Company Number: US-B.I. PHARMACEUTICALS,INC./RIDGEFIELD-2008-BP-17589BP

PATIENT
  Sex: Female

DRUGS (9)
  1. SPIRIVA [Suspect]
     Indication: BRONCHITIS CHRONIC
     Dates: start: 20080401, end: 20080601
  2. SPIRIVA [Suspect]
     Indication: DYSPNOEA
  3. ADVAIR DISKUS 100/50 [Concomitant]
     Indication: DYSPNOEA
  4. ALBUTEROL SULFATE [Concomitant]
     Indication: DYSPNOEA
  5. HYDROCHLOROTHIAZIDE [Concomitant]
  6. LISINOPRIL [Concomitant]
  7. THEOPHYLLINE [Concomitant]
  8. NEXIUM [Concomitant]
  9. DILTIAZEM XR [Concomitant]

REACTIONS (1)
  - ADVERSE DRUG REACTION [None]
